FAERS Safety Report 16106974 (Version 1)
Quarter: 2019Q1

REPORT INFORMATION
  Report Type: Spontaneous
  Country: US (occurrence: US)
  Receive Date: 20190220
  Receipt Date: 20190220
  Transmission Date: 20190418
  Serious: Yes (Hospitalization)
  Sender: FDA-Public Use
  Company Number: None

PATIENT
  Sex: Female
  Weight: 84.8 kg

DRUGS (2)
  1. VENETOCLAX 600 MG [Suspect]
     Active Substance: VENETOCLAX
     Indication: PLASMA CELL MYELOMA
     Route: 048
     Dates: start: 20181227, end: 20190103
  2. IXAZOMIB [Suspect]
     Active Substance: IXAZOMIB
     Indication: PLASMA CELL MYELOMA
     Dosage: ?          OTHER DOSE:;OTHER FREQUENCY:DAYS 1, 8,15;?
     Route: 048
     Dates: start: 20181227, end: 20190103

REACTIONS (1)
  - Upper respiratory tract infection [None]
